FAERS Safety Report 10214287 (Version 1)
Quarter: 2014Q2

REPORT INFORMATION
  Report Type: Spontaneous
  Country: US (occurrence: US)
  Receive Date: 20140603
  Receipt Date: 20140603
  Transmission Date: 20141212
  Serious: No
  Sender: FDA-Public Use
  Company Number: US-PFIZER INC-2014151883

PATIENT
  Age: 51 Year
  Sex: Male
  Weight: 145.13 kg

DRUGS (3)
  1. NEURONTIN [Suspect]
     Indication: NEUROPATHY PERIPHERAL
     Dosage: 300 MG, 3X/DAY
     Dates: start: 2013
  2. NEURONTIN [Suspect]
     Indication: JOINT SWELLING
     Dosage: 600 MG, 3X/DAY; THEN 900 MG 3X/DAY; THEN FINALLY 1200MG 3X/DAY
  3. LISINOPRIL [Concomitant]
     Indication: HYPERTENSION
     Dosage: 10 MG, DAILY

REACTIONS (1)
  - Drug ineffective [Unknown]
